FAERS Safety Report 11329130 (Version 1)
Quarter: 2015Q3

REPORT INFORMATION
  Report Type: Report from Study
  Country: PH (occurrence: PH)
  Receive Date: 20150803
  Receipt Date: 20150803
  Transmission Date: 20151125
  Serious: Yes (Hospitalization)
  Sender: FDA-Public Use
  Company Number: PHHY2015PH090182

PATIENT
  Age: 26 Year
  Sex: Male

DRUGS (1)
  1. GLIVEC [Suspect]
     Active Substance: IMATINIB MESYLATE
     Indication: CHRONIC MYELOID LEUKAEMIA
     Dosage: 600 MG, QD
     Route: 065

REACTIONS (3)
  - Road traffic accident [Unknown]
  - Lower limb fracture [Unknown]
  - Skin abrasion [Unknown]

NARRATIVE: CASE EVENT DATE: 20150503
